FAERS Safety Report 7527739-3 (Version None)
Quarter: 2011Q2

REPORT INFORMATION
  Report Type: 
  Country: None (occurrence: None)
  Receive Date: 20110527
  Receipt Date: 20110518
  Transmission Date: 20111010
  Serious: Yes (Hospitalization)
  Sender: FDA-Public Use
  Company Number: AVE_02118_2011

PATIENT
  Age: 57 Year
  Sex: Male

DRUGS (1)
  1. NICOTINE [Suspect]
     Indication: SMOKING CESSATION THERAPY
     Dosage: (DF TRANSDERMAL)
     Route: 062

REACTIONS (15)
  - BLOOD PRESSURE INCREASED [None]
  - DIASTOLIC DYSFUNCTION [None]
  - KOUNIS SYNDROME [None]
  - LIMB INJURY [None]
  - VOMITING [None]
  - PRURITUS [None]
  - BLOOD IMMUNOGLOBULIN E INCREASED [None]
  - PERIORBITAL OEDEMA [None]
  - MYOCARDIAL ISCHAEMIA [None]
  - TRYPTASE INCREASED [None]
  - CHEST PAIN [None]
  - URTICARIA [None]
  - HYPERHIDROSIS [None]
  - HEART RATE INCREASED [None]
  - EOSINOPHIL COUNT INCREASED [None]
